FAERS Safety Report 7585717-2 (Version None)
Quarter: 2011Q3

REPORT INFORMATION
  Report Type: 
  Country: None (occurrence: None)
  Receive Date: 20110701
  Receipt Date: 20110617
  Transmission Date: 20111222
  Serious: Yes (Hospitalization, Disabling, Other)
  Sender: FDA-Public Use
  Company Number: US-BAYER-2011-003445

PATIENT
  Age: 27 Year
  Sex: Female
  Weight: 99.773 kg

DRUGS (5)
  1. TOPIRAMATE [Concomitant]
     Dosage: 100 MG, UNK
  2. METRONIDAZOLE [Concomitant]
     Dosage: 500 MG, UNK
  3. YAZ [Suspect]
     Indication: MENSTRUATION IRREGULAR
     Dosage: UNK
     Route: 048
     Dates: start: 20100501, end: 20100801
  4. HYDROCODONE BITARTRATE AND ACETAMINOPHEN [Concomitant]
  5. LEXAPRO [Concomitant]
     Dosage: 10 MG, UNK

REACTIONS (4)
  - PULMONARY EMBOLISM [None]
  - THROMBOSIS [None]
  - DEFORMITY [None]
  - PAIN [None]
